FAERS Safety Report 26000929 (Version 2)
Quarter: 2025Q4

REPORT INFORMATION
  Report Type: Spontaneous
  Country: CN (occurrence: CN)
  Receive Date: 20251105
  Receipt Date: 20251112
  Transmission Date: 20260117
  Serious: Yes (Life-Threatening, Other)
  Sender: BAYER HEALTHCARE PHARMACEUTICALS INC.
  Company Number: CN-BAYER-2025A145713

PATIENT
  Age: 68 Year
  Sex: Female
  Weight: 47 kg

DRUGS (9)
  1. MOXIFLOXACIN [Interacting]
     Active Substance: MOXIFLOXACIN
     Indication: Pneumonia
     Dosage: 250 ML, QD
     Dates: start: 20250309, end: 20250317
  2. ASPIRIN [Interacting]
     Active Substance: ASPIRIN
     Indication: Antiplatelet therapy
     Dosage: 100 MG, QD
     Dates: start: 20250210, end: 20250228
  3. CEFOPERAZONE SODIUM\SULBACTAM SODIUM [Interacting]
     Active Substance: CEFOPERAZONE SODIUM\SULBACTAM SODIUM
     Indication: Pneumonia
     Dosage: 2 G, DISSOLVED IN 0.9% SODIUM CHLORIDE INJECTION, Q8HR
     Dates: start: 20250228, end: 20250317
  4. CLOPIDOGREL [Interacting]
     Active Substance: CLOPIDOGREL BISULFATE
     Indication: Antiplatelet therapy
     Dosage: 75 MG, QD
     Dates: start: 20250210, end: 20250228
  5. AMBROXOL [Concomitant]
     Active Substance: AMBROXOL
     Dosage: UNK
     Dates: start: 2025
  6. IRBESARTAN [Concomitant]
     Active Substance: IRBESARTAN
     Dosage: UNK
     Dates: start: 2025
  7. LEVAMLODIPINE [Concomitant]
     Active Substance: LEVAMLODIPINE
     Dosage: UNK
     Dates: start: 2025
  8. Shen kang [Concomitant]
     Dosage: UNK
     Dates: start: 2025
  9. POTASSIUM CHLORIDE [Concomitant]
     Active Substance: POTASSIUM CHLORIDE
     Dosage: UNK
     Dates: start: 2025

REACTIONS (12)
  - Coagulopathy [Recovered/Resolved]
  - Gastric haemorrhage [None]
  - Haematuria [None]
  - Epistaxis [None]
  - Vessel puncture site haemorrhage [None]
  - Contraindicated product administered [None]
  - Contraindicated product prescribed [None]
  - Labelled drug-disease interaction issue [None]
  - Drug interaction [None]
  - Contraindicated product administered [None]
  - Contraindicated product prescribed [None]
  - Labelled drug-disease interaction issue [None]

NARRATIVE: CASE EVENT DATE: 20250101
